FAERS Safety Report 24528848 (Version 1)
Quarter: 2024Q4

REPORT INFORMATION
  Report Type: Report from Study
  Country: US (occurrence: US)
  Receive Date: 20241021
  Receipt Date: 20241021
  Transmission Date: 20250115
  Serious: Yes (Other)
  Sender: GILEAD
  Company Number: US-GILEAD-2024-0691496

PATIENT
  Sex: Male

DRUGS (1)
  1. AZTREONAM LYSINE [Suspect]
     Active Substance: AZTREONAM LYSINE
     Indication: Cystic fibrosis
     Dosage: 1 ML, TID [FOR 28 DAYS ON AND 28 DAYS OFF ]
     Route: 055
     Dates: start: 201910

REACTIONS (1)
  - Cystic fibrosis [Unknown]
